FAERS Safety Report 10967288 (Version 2)
Quarter: 2015Q2

REPORT INFORMATION
  Report Type: Spontaneous
  Country: FR (occurrence: FR)
  Receive Date: 20150330
  Receipt Date: 20150408
  Transmission Date: 20150821
  Serious: Yes (Hospitalization, Other)
  Sender: FDA-Public Use
  Company Number: FR-ASTRAZENECA-2015SE27374

PATIENT
  Age: 28070 Day
  Sex: Female

DRUGS (7)
  1. PARIET [Concomitant]
     Active Substance: RABEPRAZOLE SODIUM
  2. STRESAM [Concomitant]
     Active Substance: ETIFOXINE
  3. XYLOCAINE NEBULIZATION [Suspect]
     Active Substance: LIDOCAINE HYDROCHLORIDE
     Dosage: 5 PERCENT, ONCE
     Route: 045
     Dates: start: 20141202, end: 20141202
  4. KARDEGIC [Concomitant]
     Active Substance: ASPIRIN LYSINE
  5. MIANSERINE [Concomitant]
     Active Substance: MIANSERIN HYDROCHLORIDE
  6. LIDOCAINE AGUETTANT [Suspect]
     Active Substance: LIDOCAINE
     Dosage: 1 PERCENT, ONCE, NON-ASTRAZENECA PRODUCT
     Route: 065
     Dates: start: 20141202, end: 20141202
  7. SECTRAL [Concomitant]
     Active Substance: ACEBUTOLOL HYDROCHLORIDE

REACTIONS (7)
  - Heart rate increased [Unknown]
  - Acute respiratory distress syndrome [Unknown]
  - Blood pressure increased [Unknown]
  - Coma [Recovered/Resolved]
  - Nervous system disorder [Recovered/Resolved]
  - Pulmonary embolism [Unknown]
  - Blood pressure immeasurable [Recovered/Resolved]

NARRATIVE: CASE EVENT DATE: 20141202
